FAERS Safety Report 8804593 (Version 2)
Quarter: 2012Q4

REPORT INFORMATION
  Report Type: 
  Country: US (occurrence: US)
  Receive Date: 20120924
  Receipt Date: 20121022
  Transmission Date: 20130627
  Serious: Yes (Other)
  Sender: FDA-Public Use
  Company Number: US-JNJFOC-20100803575

PATIENT
  Sex: Male
  Weight: 99.79 kg

DRUGS (3)
  1. LEVAQUIN [Suspect]
     Indication: SINUSITIS
     Route: 048
  2. LEVAQUIN [Suspect]
     Indication: SINUSITIS
     Route: 042
  3. CORTISONE [Suspect]
     Indication: PAIN
     Route: 042

REACTIONS (2)
  - Rotator cuff syndrome [Unknown]
  - Tendon disorder [Unknown]
